FAERS Safety Report 7271220-6 (Version None)
Quarter: 2011Q1

REPORT INFORMATION
  Report Type: 
  Country: None (occurrence: None)
  Receive Date: 20110202
  Receipt Date: 20110124
  Transmission Date: 20110831
  Serious: Yes (Hospitalization)
  Sender: FDA-Public Use
  Company Number: JP-AMGEN-JPNCT2011005817

PATIENT
  Age: 70 Year
  Sex: Female
  Weight: 37 kg

DRUGS (10)
  1. CORTICOSTEROIDS [Concomitant]
     Indication: PROPHYLAXIS
     Route: 065
  2. SODIUM BICARBONATE [Concomitant]
     Route: 048
  3. THEO-DUR [Concomitant]
     Route: 048
  4. FLUOROURACIL [Suspect]
     Indication: COLORECTAL CANCER
     Route: 040
     Dates: start: 20101108, end: 20101110
  5. PANITUMUMAB [Suspect]
     Indication: COLORECTAL CANCER
     Dosage: 6.7 MG/KG, Q2WK
     Route: 041
     Dates: start: 20101108, end: 20101108
  6. MAGLAX [Concomitant]
     Route: 048
  7. SEROTONE [Concomitant]
     Route: 048
  8. FLUOROURACIL [Suspect]
     Route: 041
     Dates: start: 20101108, end: 20101110
  9. CALCIUM LEVOFOLINATE [Suspect]
     Indication: COLORECTAL CANCER
     Route: 041
     Dates: start: 20101108, end: 20101110
  10. IRINOTECAN HYDROCHLORIDE [Suspect]
     Indication: COLORECTAL CANCER
     Route: 041
     Dates: start: 20101108, end: 20101110

REACTIONS (1)
  - FEBRILE NEUTROPENIA [None]
